FAERS Safety Report 4443529-2 (Version None)
Quarter: 2004Q3

REPORT INFORMATION
  Report Type: 
  Country: None (occurrence: None)
  Receive Date: 20040908
  Receipt Date: 20040426
  Transmission Date: 20050211
  Serious: Yes (Other)
  Sender: FDA-Public Use
  Company Number: PHBS2004BR05805

PATIENT
  Age: 31 Year
  Sex: Male
  Weight: 113 kg

DRUGS (4)
  1. MELLARIL [Suspect]
     Indication: PSYCHOTIC DISORDER
     Dosage: 25 MG, QD
     Route: 048
     Dates: start: 20040201
  2. LIMBITROL [Concomitant]
     Indication: DEPRESSION
     Dosage: UNK, QD
     Route: 048
     Dates: start: 20040201
  3. CHLORDIAZEPOXIDE [Concomitant]
     Indication: ANXIETY
     Dosage: 25 MG/DAY
     Route: 048
     Dates: start: 20030101
  4. OMEPRAZOLE [Concomitant]
     Route: 065

REACTIONS (9)
  - EJACULATION FAILURE [None]
  - ERECTILE DYSFUNCTION [None]
  - EYE DISORDER [None]
  - MALE ORGASMIC DISORDER [None]
  - NECK PAIN [None]
  - PAIN IN EXTREMITY [None]
  - PETIT MAL EPILEPSY [None]
  - SENSATION OF FOREIGN BODY [None]
  - THROAT IRRITATION [None]
